FAERS Safety Report 22393237 (Version 4)
Quarter: 2024Q1

REPORT INFORMATION
  Report Type: Report from Study
  Country: US (occurrence: US)
  Receive Date: 20230601
  Receipt Date: 20240119
  Transmission Date: 20240410
  Serious: Yes (Other)
  Sender: FDA-Public Use
  Company Number: US-TAKEDA-2022TUS038369

PATIENT
  Age: 63 Year
  Sex: Female
  Weight: 56 kg

DRUGS (7)
  1. MOBOCERTINIB [Suspect]
     Active Substance: MOBOCERTINIB
     Indication: Non-small cell lung cancer stage IV
     Dosage: 160 MILLIGRAM, QD
     Route: 048
     Dates: start: 20220603
  2. MOBOCERTINIB [Suspect]
     Active Substance: MOBOCERTINIB
     Indication: Lung neoplasm malignant
     Dosage: 160 MILLIGRAM, QD
     Route: 065
  3. MOBOCERTINIB [Suspect]
     Active Substance: MOBOCERTINIB
     Dosage: 40 MILLIGRAM
     Route: 048
  4. MOBOCERTINIB [Suspect]
     Active Substance: MOBOCERTINIB
     Dosage: 120 MILLIGRAM
     Route: 048
     Dates: end: 20230621
  5. MOBOCERTINIB [Suspect]
     Active Substance: MOBOCERTINIB
     Dosage: 40 MILLIGRAM
     Route: 048
  6. OMEPRAZOLE [Concomitant]
     Active Substance: OMEPRAZOLE
     Dosage: UNK
     Route: 065
  7. LOMOTIL [Concomitant]
     Active Substance: ATROPINE SULFATE\DIPHENOXYLATE HYDROCHLORIDE
     Dosage: UNK
     Route: 065

REACTIONS (21)
  - COVID-19 [Not Recovered/Not Resolved]
  - Cardiac disorder [Not Recovered/Not Resolved]
  - Diarrhoea [Recovering/Resolving]
  - Ocular toxicity [Unknown]
  - Rash pruritic [Recovered/Resolved]
  - Blood pressure increased [Unknown]
  - Paronychia [Unknown]
  - Onychoclasis [Unknown]
  - Skin fissures [Unknown]
  - Pharyngeal ulceration [Unknown]
  - Pharyngeal erythema [Unknown]
  - Pharyngeal swelling [Unknown]
  - Electrocardiogram abnormal [Recovered/Resolved]
  - Dyspepsia [Unknown]
  - Headache [Recovered/Resolved]
  - Gastrooesophageal reflux disease [Unknown]
  - Blood potassium decreased [Recovered/Resolved]
  - Stomatitis [Unknown]
  - Rash [Unknown]
  - Dry skin [Unknown]
  - Nausea [Unknown]

NARRATIVE: CASE EVENT DATE: 20220605
